FAERS Safety Report 21399656 (Version 4)
Quarter: 2023Q1

REPORT INFORMATION
  Report Type: Report from Study
  Country: US (occurrence: US)
  Receive Date: 20221001
  Receipt Date: 20230101
  Transmission Date: 20230418
  Serious: Yes (Hospitalization)
  Sender: FDA-Public Use
  Company Number: US-ABBVIE-4134153

PATIENT
  Age: 58 Year
  Sex: Male

DRUGS (1)
  1. IMBRUVICA [Suspect]
     Active Substance: IBRUTINIB
     Indication: Chronic lymphocytic leukaemia
     Route: 048
     Dates: start: 20220811

REACTIONS (9)
  - Nausea [Unknown]
  - Fluid intake reduced [Unknown]
  - Vomiting [Unknown]
  - Rash macular [Unknown]
  - Constipation [Unknown]
  - Aggression [Unknown]
  - Increased tendency to bruise [Unknown]
  - Arthropod bite [Unknown]
  - Urticaria [Unknown]

NARRATIVE: CASE EVENT DATE: 20220901
